FAERS Safety Report 5153777-4 (Version None)
Quarter: 2006Q4

REPORT INFORMATION
  Report Type: 
  Country: None (occurrence: None)
  Receive Date: 20061120
  Receipt Date: 20061109
  Transmission Date: 20070319
  Serious: Yes (Hospitalization)
  Sender: FDA-Public Use
  Company Number: US-JNJFOC-20061102535

PATIENT
  Sex: Male
  Weight: 77.11 kg

DRUGS (8)
  1. FENTANYL TRANSDERMAL SYSTEM [Suspect]
     Dosage: 1X 100 UG/HR PATCH PLUS 1X 50 UG/HR PATCH
     Route: 062
  2. FENTANYL TRANSDERMAL SYSTEM [Suspect]
     Indication: MALIGNANT MELANOMA
     Dosage: 1X 100 UG/HR PATCH PLUS 2X 50 UG/HR PATCHES
     Route: 062
  3. ZOCOR [Concomitant]
     Indication: BLOOD CHOLESTEROL
     Route: 048
  4. ZESTRIL [Concomitant]
     Indication: HYPERTENSION
     Route: 048
  5. ASPIRIN [Concomitant]
     Route: 048
  6. CENTRUM SILVER [Concomitant]
     Route: 048
  7. SENNA [Concomitant]
     Dosage: 1 OR 2 PER DAY
     Route: 048
  8. LORAZEPAM [Concomitant]
     Indication: PAIN
     Route: 048

REACTIONS (6)
  - DIZZINESS [None]
  - DRUG INEFFECTIVE [None]
  - INAPPROPRIATE SCHEDULE OF DRUG ADMINISTRATION [None]
  - MALAISE [None]
  - PHARMACEUTICAL PRODUCT COMPLAINT [None]
  - PNEUMONIA [None]
